FAERS Safety Report 5289239-3 (Version None)
Quarter: 2007Q1

REPORT INFORMATION
  Report Type: 
  Country: None (occurrence: None)
  Receive Date: 20070126
  Receipt Date: 20061006
  Transmission Date: 20070707
  Serious: Yes (Hospitalization)
  Sender: FDA-Public Use
  Company Number: 06P-163-0346146-00

PATIENT
  Age: 3 Month
  Sex: Male
  Weight: 4.5904 kg

DRUGS (6)
  1. OMNICEF [Suspect]
     Indication: UPPER RESPIRATORY TRACT INFECTION
     Dosage: PER ORAL
     Route: 048
     Dates: start: 20060926, end: 20061005
  2. ACETYLSALICYLIC ACID SRT [Concomitant]
  3. FUROSEMIDE [Concomitant]
  4. METOCLOPRAMIDE [Concomitant]
  5. CAPTOPRIL [Concomitant]
  6. DIMETICONE, ACTIVATED [Concomitant]

REACTIONS (1)
  - HAEMATOCHEZIA [None]
